FAERS Safety Report 22146250 (Version 1)
Quarter: 2023Q1

REPORT INFORMATION
  Report Type: Spontaneous
  Country: US (occurrence: US)
  Receive Date: 20230328
  Receipt Date: 20230328
  Transmission Date: 20230417
  Serious: No
  Sender: FDA-Public Use
  Company Number: US-IMPEL PHARMACEUTICALS INC-2022-SPO-TR-0175

PATIENT

DRUGS (1)
  1. TRUDHESA [Suspect]
     Active Substance: DIHYDROERGOTAMINE MESYLATE
     Indication: Product used for unknown indication
     Dosage: UNK
     Route: 045

REACTIONS (3)
  - Hypersensitivity [Unknown]
  - Nasal congestion [Unknown]
  - Dyspnoea [Unknown]
